FAERS Safety Report 6518814-0 (Version None)
Quarter: 2009Q4

REPORT INFORMATION
  Report Type: 
  Country: None (occurrence: None)
  Receive Date: 20091228
  Receipt Date: 20091216
  Transmission Date: 20100525
  Serious: Yes (Life-Threatening, Hospitalization, Other)
  Sender: FDA-Public Use
  Company Number: JP-BAYER-200914018BYL

PATIENT
  Age: 82 Year
  Sex: Male

DRUGS (3)
  1. NEXAVAR [Suspect]
     Indication: HEPATIC NEOPLASM MALIGNANT
     Dosage: TOTAL DAILY DOSE: 800 MG  UNIT DOSE: 200 MG
     Route: 048
     Dates: start: 20090929, end: 20091008
  2. NEXAVAR [Suspect]
     Dosage: TOTAL DAILY DOSE: 400 MG  UNIT DOSE: 200 MG
     Route: 048
     Dates: start: 20091008, end: 20091014
  3. URSO 250 [Concomitant]
     Route: 048

REACTIONS (4)
  - ENTEROCOLITIS HAEMORRHAGIC [None]
  - INFLAMMATION [None]
  - LIVER DISORDER [None]
  - RENAL IMPAIRMENT [None]
